FAERS Safety Report 12115081 (Version 1)
Quarter: 2016Q1

REPORT INFORMATION
  Report Type: Spontaneous
  Country: None (occurrence: None)
  Receive Date: 20160224
  Receipt Date: 20160224
  Transmission Date: 20160526
  Serious: No
  Sender: FDA-Public Use
  Company Number: None

PATIENT
  Age: 30 Year
  Sex: Female

DRUGS (1)
  1. ATENOLOL 100 MG [Suspect]
     Active Substance: ATENOLOL
     Indication: HYPERTENSION
     Route: 048
     Dates: start: 20150905, end: 20160223

REACTIONS (3)
  - Sexual dysfunction [None]
  - Alopecia [None]
  - Depression [None]

NARRATIVE: CASE EVENT DATE: 20160223
